FAERS Safety Report 4464222-6 (Version None)
Quarter: 2004Q4

REPORT INFORMATION
  Report Type: 
  Country: None (occurrence: None)
  Receive Date: 20041001
  Receipt Date: 20040920
  Transmission Date: 20050328
  Serious: Yes (Hospitalization)
  Sender: FDA-Public Use
  Company Number: FR-GLAXOSMITHKLINE-B0345928A

PATIENT
  Age: 85 Year
  Sex: Female

DRUGS (4)
  1. DEROXAT [Suspect]
     Dosage: 20MG PER DAY
     Route: 048
     Dates: start: 20040412, end: 20040418
  2. CORTANCYL [Suspect]
     Dosage: 20MG PER DAY
     Route: 048
     Dates: start: 20040412, end: 20040418
  3. LASIX [Suspect]
     Dosage: 40MG PER DAY
     Route: 048
     Dates: end: 20040418
  4. CIPROFLOXACIN [Suspect]
     Dosage: 500MG PER DAY
     Route: 048
     Dates: start: 20040411, end: 20040417

REACTIONS (3)
  - CONVULSION [None]
  - MEMORY IMPAIRMENT [None]
  - MENTAL IMPAIRMENT [None]
